FAERS Safety Report 9885831 (Version 1)
Quarter: 2014Q1

REPORT INFORMATION
  Report Type: Report from Study
  Country: DE (occurrence: DE)
  Receive Date: 20140210
  Receipt Date: 20140210
  Transmission Date: 20141002
  Serious: Yes (Hospitalization)
  Sender: FDA-Public Use
  Company Number: DE-BRISTOL-MYERS SQUIBB COMPANY-20130985

PATIENT
  Age: 77 Year
  Sex: Female

DRUGS (3)
  1. ABATACEPT [Suspect]
     Dates: start: 200710, end: 200803
  2. METHOTREXATE [Suspect]
     Dosage: 10 MG UNTIL 09MAR10?5MG 01FEB11?3.7 19MAY11?3.8 11OCT11?7.5 UNTIL 09JAN13
     Dates: start: 200710
  3. RITUXIMAB [Suspect]
     Dosage: 16JUL2009,09MAR10,01FEB1,11OCT2011
     Dates: start: 20080909

REACTIONS (1)
  - Grand mal convulsion [Unknown]
